FAERS Safety Report 7883818-2 (Version None)
Quarter: 2011Q4

REPORT INFORMATION
  Report Type: 
  Country: None (occurrence: None)
  Receive Date: 20111102
  Receipt Date: 20111026
  Transmission Date: 20120403
  Serious: Yes (Hospitalization, Other)
  Sender: FDA-Public Use
  Company Number: US-ACTELION-A-NJ2011-56112

PATIENT

DRUGS (28)
  1. TENORMIN [Concomitant]
  2. DULCOLAX [Concomitant]
  3. PEPCID [Concomitant]
  4. SYNTHROID [Concomitant]
  5. MAG-OX [Concomitant]
  6. MAGNESIUM SULFATE [Concomitant]
  7. BENADRYL [Concomitant]
  8. TRACLEER [Suspect]
     Dosage: 62.5 MG, BID
     Route: 048
     Dates: start: 20100224, end: 20110317
  9. COUMADIN [Concomitant]
  10. ATROPINE [Concomitant]
  11. CORTISONE ACETATE [Concomitant]
  12. LIDOCAINE HYDROCHLORIDE/EPINEPHRINE [Concomitant]
  13. PERCOCET [Concomitant]
  14. OCEAN NASAL [Concomitant]
  15. LASIX [Concomitant]
  16. ALTEPLASE [Concomitant]
  17. ZOFRAN [Concomitant]
  18. ALDACTONE [Concomitant]
  19. REVATIO [Concomitant]
  20. TYLENOL-500 [Concomitant]
  21. LOMOTIL [Concomitant]
  22. CLARITIN [Concomitant]
  23. EPOPROSTENOL SODIUM [Suspect]
     Indication: PULMONARY ARTERIAL HYPERTENSION
     Dosage: 45 NG/KG, PER MIN
     Route: 041
     Dates: start: 20101202
  24. CALCIUM GLUCONATE [Concomitant]
  25. DORIBAX [Concomitant]
  26. POTASSIUM CHLORIDE [Concomitant]
  27. TRACLEER [Suspect]
     Indication: PULMONARY ARTERIAL HYPERTENSION
     Dosage: 125 MG, BID
     Route: 048
     Dates: start: 20110318
  28. AMBIEN [Concomitant]

REACTIONS (2)
  - PYREXIA [None]
  - DEVICE RELATED INFECTION [None]
